FAERS Safety Report 25046207 (Version 2)
Quarter: 2025Q1

REPORT INFORMATION
  Report Type: Spontaneous
  Country: JP (occurrence: JP)
  Receive Date: 20250306
  Receipt Date: 20250328
  Transmission Date: 20250409
  Serious: Yes (Other)
  Sender: ALEXION PHARMACEUTICALS
  Company Number: JP-ASTRAZENECA-250019934_063010_P_1

PATIENT
  Age: 94 Year
  Weight: 55 kg

DRUGS (22)
  1. DAPAGLIFLOZIN [Suspect]
     Active Substance: DAPAGLIFLOZIN
     Indication: Cardiac failure chronic
     Dosage: 10 MILLIGRAM, QD
  2. DAPAGLIFLOZIN [Suspect]
     Active Substance: DAPAGLIFLOZIN
  3. TRICHLORMETHIAZIDE [Concomitant]
     Active Substance: TRICHLORMETHIAZIDE
     Indication: Hypertension
     Route: 065
  4. TRICHLORMETHIAZIDE [Concomitant]
     Active Substance: TRICHLORMETHIAZIDE
     Indication: Oedema
     Route: 065
  5. AZOSEMIDE [Concomitant]
     Active Substance: AZOSEMIDE
     Indication: Cardiac failure chronic
     Route: 065
  6. AZOSEMIDE [Concomitant]
     Active Substance: AZOSEMIDE
     Route: 065
  7. AZOSEMIDE [Concomitant]
     Active Substance: AZOSEMIDE
     Route: 065
  8. FUROSEMIDE [Concomitant]
     Active Substance: FUROSEMIDE
     Route: 065
  9. Espo [Concomitant]
     Route: 065
  10. Diart [Concomitant]
     Indication: Cardiac failure chronic
     Route: 065
  11. Diart [Concomitant]
     Route: 065
  12. Diart [Concomitant]
     Route: 065
  13. Diart [Concomitant]
  14. ASPIRIN [Concomitant]
     Active Substance: ASPIRIN
  15. RABEPRAZOLE SODIUM [Concomitant]
     Active Substance: RABEPRAZOLE SODIUM
  16. ENTRESTO [Concomitant]
     Active Substance: SACUBITRIL\VALSARTAN
  17. ALLOPURINOL [Concomitant]
     Active Substance: ALLOPURINOL
  18. LASIX [Concomitant]
     Active Substance: FUROSEMIDE
  19. ADALAT CC [Concomitant]
     Active Substance: NIFEDIPINE
  20. TULOBUTEROL [Concomitant]
     Active Substance: TULOBUTEROL
  21. SPIRIVA [Concomitant]
     Active Substance: TIOTROPIUM BROMIDE MONOHYDRATE
  22. DARBEPOETIN ALFA [Concomitant]
     Active Substance: DARBEPOETIN ALFA

REACTIONS (9)
  - Diverticulitis [Unknown]
  - Acute myocardial infarction [Unknown]
  - Euglycaemic diabetic ketoacidosis [Unknown]
  - Blood creatinine increased [Unknown]
  - Diarrhoea [Unknown]
  - SARS-CoV-2 test positive [Unknown]
  - Weight decreased [Unknown]
  - Physical deconditioning [Unknown]
  - Dehydration [Unknown]
